FAERS Safety Report 24917638 (Version 1)
Quarter: 2025Q1

REPORT INFORMATION
  Report Type: Spontaneous
  Country: US (occurrence: US)
  Receive Date: 20250203
  Receipt Date: 20250203
  Transmission Date: 20250408
  Serious: No
  Sender: BAUSCH AND LOMB
  Company Number: US-BAUSCH-BL-2025-001110

PATIENT
  Age: 65 Year
  Sex: Female

DRUGS (1)
  1. DILTIAZEM HYDROCHLORIDE [Suspect]
     Active Substance: DILTIAZEM HYDROCHLORIDE
     Indication: Supraventricular tachycardia
     Route: 065
     Dates: start: 202404

REACTIONS (5)
  - Abdominal pain upper [Unknown]
  - Abdominal distension [Unknown]
  - Palpitations [Unknown]
  - Wrong technique in product usage process [Unknown]
  - Underdose [Unknown]
